FAERS Safety Report 11077796 (Version 2)
Quarter: 2015Q3

REPORT INFORMATION
  Report Type: Report from Study
  Country: US (occurrence: US)
  Receive Date: 20150430
  Receipt Date: 20150714
  Transmission Date: 20151125
  Serious: No
  Sender: FDA-Public Use
  Company Number: US-AMGEN-USASL2015017573

PATIENT
  Age: 27 Year
  Sex: Female
  Weight: 98.41 kg

DRUGS (3)
  1. ENBREL [Suspect]
     Active Substance: ETANERCEPT
     Indication: RHEUMATOID ARTHRITIS
     Dosage: 50 ML, ONCE A WEEK
     Route: 058
     Dates: start: 2006
  2. SYNTHROID [Concomitant]
     Active Substance: LEVOTHYROXINE SODIUM
     Dosage: 150 MG, ONCE A DAY
     Dates: start: 2001
  3. FOLIC ACID. [Concomitant]
     Active Substance: FOLIC ACID
     Dosage: 1 MG DAILY

REACTIONS (3)
  - Pregnancy [Recovered/Resolved]
  - Lactation disorder [Unknown]
  - Fall [Unknown]
